FAERS Safety Report 16422066 (Version 1)
Quarter: 2019Q2

REPORT INFORMATION
  Report Type: Spontaneous
  Country: RU (occurrence: RU)
  Receive Date: 20190612
  Receipt Date: 20190612
  Transmission Date: 20190711
  Serious: Yes (Hospitalization, Other)
  Sender: FDA-Public Use
  Company Number: RU-GLAXOSMITHKLINE-RU2019GSK102658

PATIENT
  Age: 26 Year
  Sex: Male

DRUGS (1)
  1. LAMOTRIGINE. [Suspect]
     Active Substance: LAMOTRIGINE
     Indication: BIPOLAR DISORDER
     Dosage: 400 MG, QD
     Dates: end: 20190601

REACTIONS (7)
  - Rash [Unknown]
  - Body temperature increased [Recovering/Resolving]
  - Liver disorder [Unknown]
  - Haemangioma of liver [Unknown]
  - Respiratory tract infection bacterial [Unknown]
  - Lymphadenopathy [Unknown]
  - Respiratory tract infection viral [Unknown]

NARRATIVE: CASE EVENT DATE: 20190527
